FAERS Safety Report 10355980 (Version 2)
Quarter: 2014Q3

REPORT INFORMATION
  Report Type: Spontaneous
  Country: CO (occurrence: CO)
  Receive Date: 20140801
  Receipt Date: 20140822
  Transmission Date: 20150326
  Serious: Yes (Other)
  Sender: FDA-Public Use
  Company Number: CO-AMGEN-COLSP2014057307

PATIENT
  Age: 67 Year
  Sex: Female
  Weight: 64 kg

DRUGS (12)
  1. VECTIBIX [Suspect]
     Active Substance: PANITUMUMAB
     Indication: METASTASES TO LIVER
  2. FLUOROURACIL. [Concomitant]
     Active Substance: FLUOROURACIL
     Indication: METASTASES TO LUNG
     Dosage: UNK UNK, EVERY 15 DAYS
     Route: 042
     Dates: start: 20140711
  3. FLUOROURACIL. [Concomitant]
     Active Substance: FLUOROURACIL
     Indication: METASTASES TO LIVER
  4. VECTIBIX [Suspect]
     Active Substance: PANITUMUMAB
     Indication: METASTASES TO LUNG
  5. FLUOROURACIL. [Concomitant]
     Active Substance: FLUOROURACIL
     Indication: COLON CANCER STAGE IV
     Dosage: UNK UNK, EVERY 15 DAYS
     Route: 042
     Dates: start: 20140507
  6. IRINOTECAN [Concomitant]
     Active Substance: IRINOTECAN
     Indication: COLON CANCER STAGE IV
     Dosage: UNK UNK, EVERY 15 DAYS
     Route: 042
     Dates: start: 20140507
  7. IRINOTECAN [Concomitant]
     Active Substance: IRINOTECAN
     Indication: METASTASES TO LIVER
  8. FOLINIC ACID [Concomitant]
     Active Substance: LEUCOVORIN
     Indication: COLON CANCER STAGE IV
     Dosage: UNK UNK, EVERY 15 DAYS
     Route: 042
     Dates: start: 20140507
  9. FOLINIC ACID [Concomitant]
     Active Substance: LEUCOVORIN
     Indication: METASTASES TO LUNG
     Dosage: UNK UNK, EVERY 15 DAYS
     Route: 042
     Dates: start: 20140711
  10. IRINOTECAN [Concomitant]
     Active Substance: IRINOTECAN
     Indication: METASTASES TO LUNG
     Dosage: UNK UNK, EVERY 15 DAYS
     Route: 042
     Dates: start: 20140711
  11. FOLINIC ACID [Concomitant]
     Active Substance: LEUCOVORIN
     Indication: METASTASES TO LIVER
  12. VECTIBIX [Suspect]
     Active Substance: PANITUMUMAB
     Indication: COLON CANCER STAGE IV
     Dosage: 380 MG, EVERY 15 DAYS (6MG/KG DAY1 AND DAY15)
     Route: 042
     Dates: start: 20140507

REACTIONS (1)
  - Anaemia [Recovered/Resolved]

NARRATIVE: CASE EVENT DATE: 20140724
